FAERS Safety Report 15363057 (Version 1)
Quarter: 2018Q3

REPORT INFORMATION
  Report Type: Spontaneous
  Country: TR (occurrence: TR)
  Receive Date: 20180907
  Receipt Date: 20180907
  Transmission Date: 20181010
  Serious: Yes (Hospitalization, Other)
  Sender: FDA-Public Use
  Company Number: TR-PFIZER INC-2018358019

PATIENT
  Age: 23 Year
  Sex: Female

DRUGS (1)
  1. PREGABALIN. [Suspect]
     Active Substance: PREGABALIN
     Dosage: 300 MG, UNK (10?15 NUMBERS, UNTIL THE MORNING)
     Route: 045

REACTIONS (5)
  - Myoclonic epilepsy [Recovered/Resolved]
  - Myoclonus [Recovered/Resolved]
  - Incorrect route of drug administration [Recovered/Resolved]
  - Substance use [Recovered/Resolved]
  - Overdose [Recovered/Resolved]
